FAERS Safety Report 19213145 (Version 2)
Quarter: 2025Q2

REPORT INFORMATION
  Report Type: Spontaneous
  Country: JP (occurrence: JP)
  Receive Date: 20210504
  Receipt Date: 20250403
  Transmission Date: 20250716
  Serious: Yes (Hospitalization, Other)
  Sender: EXELIXIS
  Company Number: JP-TAKEDA-2021TJP003578

PATIENT
  Age: 66 Year
  Sex: Male
  Weight: 85 kg

DRUGS (11)
  1. CABOMETYX [Suspect]
     Active Substance: CABOZANTINIB S-MALATE
     Indication: Hepatocellular carcinoma
     Dosage: 40 MILLIGRAM, QD
     Route: 048
     Dates: start: 20210106, end: 20210202
  2. TERBINAFINE [Concomitant]
     Active Substance: TERBINAFINE
     Route: 065
  3. VONOPRAZAN FUMARATE [Concomitant]
     Active Substance: VONOPRAZAN FUMARATE
     Indication: Gastrooesophageal reflux disease
     Dosage: 20 MILLIGRAM, QD
     Route: 048
     Dates: start: 20190620
  4. AMINO ACIDS, SOURCE UNSPECIFIED [Concomitant]
     Active Substance: AMINO ACIDS, SOURCE UNSPECIFIED
     Indication: Hepatic cirrhosis
     Dosage: 4.15 GRAM, TID
     Route: 048
     Dates: start: 20190729
  5. SPIRONOLACTONE [Concomitant]
     Active Substance: SPIRONOLACTONE
     Indication: Ascites
     Dosage: 50 MILLIGRAM, QD
     Route: 048
     Dates: start: 20200416
  6. FUROSEMIDE [Concomitant]
     Active Substance: FUROSEMIDE
     Indication: Ascites
     Dosage: 10 MILLIGRAM, QD
     Route: 048
     Dates: start: 20200416
  7. ASPIRIN [Concomitant]
     Active Substance: ASPIRIN
     Indication: Venous stent insertion
     Dosage: 100 MILLIGRAM, QD
     Route: 048
     Dates: start: 20200430
  8. KAYEXALATE [Concomitant]
     Active Substance: SODIUM POLYSTYRENE SULFONATE
     Indication: Hyperkalaemia
     Dosage: 3 DOSAGE FORM, TID
     Route: 048
     Dates: start: 20201022, end: 20210202
  9. SAMSCA [Concomitant]
     Active Substance: TOLVAPTAN
     Indication: Ascites
     Dosage: 7.5 MILLIGRAM, QD
     Route: 048
     Dates: start: 20200424
  10. UNSPECIFIED INGREDIENT [Concomitant]
     Active Substance: UNSPECIFIED INGREDIENT
     Indication: Hepatic cirrhosis
     Dosage: 50 GRAM, QD
     Route: 048
     Dates: start: 20190620, end: 20210216
  11. TOPIROXOSTAT [Concomitant]
     Active Substance: TOPIROXOSTAT
     Indication: Hyperuricaemia
     Dosage: 20 MILLIGRAM, BID
     Route: 048
     Dates: start: 20210108

REACTIONS (3)
  - Gastrointestinal haemorrhage [Recovered/Resolved]
  - Colitis [Unknown]
  - Varices oesophageal [Recovering/Resolving]

NARRATIVE: CASE EVENT DATE: 20210202
